FAERS Safety Report 20812339 (Version 1)
Quarter: 2022Q2

REPORT INFORMATION
  Report Type: Other
  Country: CA (occurrence: CA)
  Receive Date: 20220511
  Receipt Date: 20220511
  Transmission Date: 20220720
  Serious: Yes (Other)
  Sender: FDA-Public Use
  Company Number: CA-CELLTRION INC.-2022CA005886

PATIENT

DRUGS (6)
  1. RITUXIMAB [Suspect]
     Active Substance: RITUXIMAB
     Indication: Granulomatosis with polyangiitis
     Dosage: 1000 MILLIGRAM
     Route: 042
  2. PREDNISONE [Suspect]
     Active Substance: PREDNISONE
     Indication: Product used for unknown indication
     Route: 065
  3. METOPROLOL [Concomitant]
     Active Substance: METOPROLOL
     Indication: Product used for unknown indication
  4. PANTOPRAZOLE [Concomitant]
     Active Substance: PANTOPRAZOLE
     Indication: Product used for unknown indication
  5. RISEDRONATE SODIUM [Concomitant]
     Active Substance: RISEDRONATE SODIUM
     Indication: Product used for unknown indication
  6. SULFAMETHOXAZOLE\TRIMETHOPRIM [Concomitant]
     Active Substance: SULFAMETHOXAZOLE\TRIMETHOPRIM
     Indication: Product used for unknown indication

REACTIONS (19)
  - Anxiety [Recovered/Resolved]
  - Colon cancer [Recovered/Resolved]
  - Cushingoid [Recovered/Resolved]
  - Dysphemia [Recovered/Resolved]
  - Dysphonia [Recovered/Resolved]
  - Essential tremor [Recovered/Resolved]
  - Iron deficiency [Recovered/Resolved]
  - Laryngeal stenosis [Recovered/Resolved]
  - Nasal mucosal disorder [Recovered/Resolved]
  - Oedema [Recovered/Resolved]
  - Productive cough [Recovered/Resolved]
  - Pulmonary fibrosis [Recovered/Resolved]
  - Stridor [Recovered/Resolved]
  - Ureterolithiasis [Recovered/Resolved]
  - Weight increased [Recovered/Resolved]
  - Headache [Recovered/Resolved]
  - Muscle spasms [Recovered/Resolved]
  - Nasal congestion [Recovered/Resolved]
  - Off label use [Recovered/Resolved]
